FAERS Safety Report 5721845-1 (Version None)
Quarter: 2008Q2

REPORT INFORMATION
  Report Type: 
  Country: None (occurrence: None)
  Receive Date: 20080429
  Receipt Date: 20080418
  Transmission Date: 20081010
  Serious: Yes (Other)
  Sender: FDA-Public Use
  Company Number: JP-SANOFI-SYNTHELABO-A01200804688

PATIENT
  Age: 63 Year
  Sex: Male

DRUGS (4)
  1. LEUCOVORIN CALCIUM [Suspect]
     Route: 041
     Dates: start: 20080414, end: 20080414
  2. OXALIPLATIN [Suspect]
     Route: 041
     Dates: start: 20080414, end: 20080414
  3. FLUOROURACIL [Suspect]
     Route: 040
     Dates: start: 20080414, end: 20080414
  4. FLUOROURACIL [Suspect]
     Route: 041
     Dates: start: 20080414, end: 20080415

REACTIONS (5)
  - ABNORMAL BEHAVIOUR [None]
  - COGNITIVE DISORDER [None]
  - DELUSION [None]
  - EXPRESSIVE LANGUAGE DISORDER [None]
  - HALLUCINATION [None]
